FAERS Safety Report 5410461-7 (Version None)
Quarter: 2007Q3

REPORT INFORMATION
  Report Type: 
  Country: None (occurrence: None)
  Receive Date: 20070810
  Receipt Date: 20061220
  Transmission Date: 20080115
  Serious: No
  Sender: FDA-Public Use
  Company Number: A0632316A

PATIENT
  Age: 36 Year
  Sex: Female

DRUGS (6)
  1. PAROXETINE [Suspect]
     Indication: DEPRESSION
     Dosage: 30MG PER DAY
     Route: 048
  2. THYROID TAB [Concomitant]
  3. MAGNESIUM SULFATE [Concomitant]
  4. ASTROGALUS [Concomitant]
  5. UNKNOWN MEDICATION [Concomitant]
  6. MULTI-VITAMIN [Concomitant]

REACTIONS (1)
  - DRUG INEFFECTIVE [None]
